FAERS Safety Report 6550628-8 (Version None)
Quarter: 2010Q1

REPORT INFORMATION
  Report Type: 
  Country: None (occurrence: None)
  Receive Date: 20100121
  Receipt Date: 20100111
  Transmission Date: 20100710
  Serious: Yes (Death)
  Sender: FDA-Public Use
  Company Number: 004552

PATIENT
  Age: 26 Year
  Sex: Female

DRUGS (5)
  1. ALPRAZOLAM [Suspect]
     Dosage: (ORAL)
     Route: 048
  2. PROMETHAZINE [Suspect]
     Dosage: 925 MG/ML)
  3. PHENOBARBITAL [Concomitant]
  4. ZOLPIDEM [Concomitant]
  5. LORAZEPAM [Concomitant]

REACTIONS (6)
  - CARDIO-RESPIRATORY ARREST [None]
  - COMPLETED SUICIDE [None]
  - DRUG TOXICITY [None]
  - FOREIGN BODY REACTION [None]
  - LUNG DISORDER [None]
  - SELF-MEDICATION [None]
